FAERS Safety Report 10270820 (Version 2)
Quarter: 2014Q3

REPORT INFORMATION
  Report Type: Report from Study
  Country: US (occurrence: US)
  Receive Date: 20140701
  Receipt Date: 20140715
  Transmission Date: 20150326
  Serious: Yes (Hospitalization)
  Sender: FDA-Public Use
  Company Number: US-ACTELION-A-US2014-100972

PATIENT
  Age: 53 Year
  Sex: Female

DRUGS (3)
  1. COUMADIN [Concomitant]
     Active Substance: WARFARIN SODIUM
  2. VELETRI [Suspect]
     Active Substance: EPOPROSTENOL
     Indication: PULMONARY ARTERIAL HYPERTENSION
     Dosage: 40.5 NG/KG, PER MIN
     Route: 042
     Dates: start: 20120511
  3. LETAIRIS [Concomitant]
     Active Substance: AMBRISENTAN

REACTIONS (4)
  - Biopsy thyroid gland [Unknown]
  - Biopsy lymph gland [Unknown]
  - Pleural effusion [Unknown]
  - Lung infection [Unknown]

NARRATIVE: CASE EVENT DATE: 20140612
